FAERS Safety Report 9068500 (Version 1)
Quarter: 2013Q1

REPORT INFORMATION
  Report Type: Spontaneous
  Country: US (occurrence: None)
  Receive Date: 20130212
  Receipt Date: 20130212
  Transmission Date: 20140127
  Serious: No
  Sender: FDA-Public Use
  Company Number: None

PATIENT
  Age: 62 Year
  Sex: Female
  Weight: 53.07 kg

DRUGS (1)
  1. DYMISTA [Suspect]
     Indication: ALLERGIC SINUSITIS
     Route: 045
     Dates: start: 20130206, end: 20130207

REACTIONS (2)
  - Vision blurred [None]
  - Mydriasis [None]
